FAERS Safety Report 8263659-7 (Version None)
Quarter: 2012Q2

REPORT INFORMATION
  Report Type: 
  Country: None (occurrence: None)
  Receive Date: 20120405
  Receipt Date: 20120329
  Transmission Date: 20120825
  Serious: Yes (Life-Threatening, Other)
  Sender: FDA-Public Use
  Company Number: DE-FRI-1000029424

PATIENT
  Sex: Female

DRUGS (2)
  1. ESCITALOPRAM [Suspect]
     Dosage: 5 MG
     Route: 064
     Dates: start: 20110315
  2. ESCITALOPRAM [Suspect]
     Dosage: 10 MG
     Route: 064
     Dates: end: 20110314

REACTIONS (2)
  - FOETAL EXPOSURE DURING PREGNANCY [None]
  - CEREBRAL HAEMORRHAGE NEONATAL [None]
